FAERS Safety Report 15190050 (Version 1)
Quarter: 2018Q3

REPORT INFORMATION
  Report Type: Spontaneous
  Country: IT (occurrence: IT)
  Receive Date: 20180724
  Receipt Date: 20180724
  Transmission Date: 20181010
  Serious: Yes (Other)
  Sender: FDA-Public Use
  Company Number: PHHY2018IT007205

PATIENT

DRUGS (1)
  1. OXALIPLATIN. [Suspect]
     Active Substance: OXALIPLATIN
     Indication: NEOPLASM
     Dosage: UNK
     Route: 065

REACTIONS (3)
  - Gastric varices [Unknown]
  - Non-cirrhotic portal hypertension [Unknown]
  - Portal hypertension [Unknown]
